FAERS Safety Report 12766306 (Version 1)
Quarter: 2016Q3

REPORT INFORMATION
  Report Type: Spontaneous
  Country: IN (occurrence: US)
  Receive Date: 20160921
  Receipt Date: 20160921
  Transmission Date: 20161109
  Serious: Yes (Other)
  Sender: FDA-Public Use
  Company Number: None

PATIENT
  Age: 35 Year
  Sex: Male
  Weight: 77 kg

DRUGS (2)
  1. ARBITEL-40, TELMISARTAN [Suspect]
     Active Substance: TELMISARTAN
     Indication: HYPERTENSION
     Route: 048
     Dates: start: 20160917, end: 20160919
  2. ARBITEL-40, TELMISARTAN [Suspect]
     Active Substance: TELMISARTAN
     Indication: BUNDLE BRANCH BLOCK RIGHT
     Route: 048
     Dates: start: 20160917, end: 20160919

REACTIONS (3)
  - Dizziness [None]
  - Chest discomfort [None]
  - Chest pain [None]

NARRATIVE: CASE EVENT DATE: 20160918
